FAERS Safety Report 9270804 (Version 1)
Quarter: 2013Q2

REPORT INFORMATION
  Report Type: Spontaneous
  Country: US (occurrence: US)
  Receive Date: 20130503
  Receipt Date: 20130503
  Transmission Date: 20140414
  Serious: No
  Sender: FDA-Public Use
  Company Number: US-009507513-1304USA015436

PATIENT
  Age: 25 Year
  Sex: Female

DRUGS (2)
  1. CLARITIN-D 24 HOUR [Suspect]
     Indication: URTICARIA
     Dosage: UNK, QD
     Route: 048
     Dates: start: 20130411
  2. CLARITIN-D 24 HOUR [Suspect]
     Indication: MEDICAL OBSERVATION
     Dosage: 20 MG, ONCE
     Route: 048
     Dates: start: 20130418

REACTIONS (3)
  - Insomnia [Unknown]
  - Accidental overdose [Not Recovered/Not Resolved]
  - Off label use [Unknown]
